FAERS Safety Report 6164358-8 (Version None)
Quarter: 2009Q2

REPORT INFORMATION
  Report Type: 
  Country: None (occurrence: None)
  Receive Date: 20090421
  Receipt Date: 20090406
  Transmission Date: 20091009
  Serious: Yes (Hospitalization)
  Sender: FDA-Public Use
  Company Number: 2009001054

PATIENT
  Age: 65 Year
  Sex: Female

DRUGS (1)
  1. TARCEVA [Suspect]
     Indication: LUNG NEOPLASM MALIGNANT
     Dosage: ((100MG AM AND 150MG PM)), ORAL
     Route: 048
     Dates: start: 20090324, end: 20090330

REACTIONS (4)
  - BLOOD ELECTROLYTES ABNORMAL [None]
  - LABORATORY TEST ABNORMAL [None]
  - SKIN BURNING SENSATION [None]
  - SKIN EXFOLIATION [None]
